FAERS Safety Report 24276630 (Version 1)
Quarter: 2024Q3

REPORT INFORMATION
  Report Type: Report from Study
  Country: US (occurrence: US)
  Receive Date: 20240903
  Receipt Date: 20240903
  Transmission Date: 20241017
  Serious: Yes (Hospitalization)
  Sender: ABBVIE
  Company Number: US-ABBVIE-5898710

PATIENT
  Sex: Male

DRUGS (1)
  1. SKYRIZI [Suspect]
     Active Substance: RISANKIZUMAB-RZAA
     Indication: Psoriasis
     Route: 058
     Dates: start: 20231218

REACTIONS (5)
  - Pain [Unknown]
  - Adverse drug reaction [Unknown]
  - Fall [Unknown]
  - Hypoaesthesia [Unknown]
  - Pyrexia [Unknown]
